FAERS Safety Report 7150677-5 (Version None)
Quarter: 2010Q4

REPORT INFORMATION
  Report Type: 
  Country: None (occurrence: None)
  Receive Date: 20101124
  Receipt Date: 20101116
  Transmission Date: 20110411
  Serious: Yes (Other)
  Sender: FDA-Public Use
  Company Number: LEO-2010-01016

PATIENT
  Sex: Female

DRUGS (1)
  1. TACLONEX SCALP [Suspect]
     Indication: PSORIASIS
     Dosage: SINCE SEVERAL MONTHS, TOPICAL
     Route: 061
     Dates: start: 20100101, end: 20100101

REACTIONS (1)
  - CATARACT [None]
